FAERS Safety Report 4433518-6 (Version None)
Quarter: 2004Q3

REPORT INFORMATION
  Report Type: 
  Country: None (occurrence: None)
  Receive Date: 20040826
  Receipt Date: 20040817
  Transmission Date: 20050211
  Serious: Yes (Disabling)
  Sender: FDA-Public Use
  Company Number: 200418262GDDC

PATIENT
  Age: 44 Year
  Sex: Female

DRUGS (6)
  1. LANTUS [Suspect]
     Indication: DIABETES MELLITUS
  2. NOVORAPID [Concomitant]
  3. SIMVASTATIN [Concomitant]
  4. LISINOPRIL [Concomitant]
  5. METFORMIN HCL [Concomitant]
  6. HERBAL PREPARATION [Concomitant]

REACTIONS (3)
  - ABDOMINAL DISTENSION [None]
  - VISUAL ACUITY REDUCED [None]
  - WEIGHT INCREASED [None]
